FAERS Safety Report 13488484 (Version 1)
Quarter: 2017Q2

REPORT INFORMATION
  Report Type: Spontaneous
  Country: US (occurrence: US)
  Receive Date: 20170426
  Receipt Date: 20170426
  Transmission Date: 20170830
  Serious: No
  Sender: FDA-Public Use
  Company Number: US-ALKERMES INC.-ALK-2016-004054

PATIENT
  Age: 40 Year
  Sex: Male
  Weight: 90.7 kg

DRUGS (2)
  1. VIVITROL [Suspect]
     Active Substance: NALTREXONE
     Indication: DRUG USE DISORDER
     Dosage: 380 MG, QMO
     Route: 030
     Dates: start: 20161027
  2. VIVITROL [Suspect]
     Active Substance: NALTREXONE
     Indication: ALCOHOLISM

REACTIONS (10)
  - Malaise [Unknown]
  - Feeling abnormal [Unknown]
  - Amnesia [Recovering/Resolving]
  - Distractibility [Recovering/Resolving]
  - Hallucination [Recovering/Resolving]
  - Drug dose omission [Recovered/Resolved]
  - Sleep disorder [Unknown]
  - Delusion [Recovering/Resolving]
  - Decreased appetite [Unknown]
  - Paranoia [Recovering/Resolving]

NARRATIVE: CASE EVENT DATE: 20161123
